FAERS Safety Report 19167835 (Version 1)
Quarter: 2021Q2

REPORT INFORMATION
  Report Type: Spontaneous
  Country: US (occurrence: US)
  Receive Date: 20210422
  Receipt Date: 20210422
  Transmission Date: 20210717
  Serious: No
  Sender: FDA-Public Use
  Company Number: US-EPICPHARMA-2020EPC00221

PATIENT
  Age: 77 Year
  Sex: Female
  Weight: 87.53 kg

DRUGS (5)
  1. DIETARY SUPPLEMENT [Concomitant]
     Active Substance: DIETARY SUPPLEMENT
  2. BOSENTAN (ZYDUS) [Suspect]
     Active Substance: BOSENTAN
     Indication: PULMONARY ARTERIAL HYPERTENSION
     Dosage: 62.5 MG, 2X/DAY
     Route: 048
     Dates: start: 20190613
  3. BOSENTAN (ZYDUS) [Suspect]
     Active Substance: BOSENTAN
  4. AMLODIPINE [Suspect]
     Active Substance: AMLODIPINE BESYLATE
     Dosage: UNK
     Dates: end: 202005
  5. DIETARY SUPPLEMENT [Concomitant]
     Active Substance: DIETARY SUPPLEMENT

REACTIONS (2)
  - Dizziness [Recovered/Resolved]
  - Hypotension [Recovered/Resolved]

NARRATIVE: CASE EVENT DATE: 2020
